FAERS Safety Report 19922942 (Version 4)
Quarter: 2024Q1

REPORT INFORMATION
  Report Type: Other
  Country: CZ (occurrence: CZ)
  Receive Date: 20211006
  Receipt Date: 20240328
  Transmission Date: 20240410
  Serious: Yes (Other)
  Sender: FDA-Public Use
  Company Number: None

PATIENT
  Age: 48 Year
  Sex: Female

DRUGS (25)
  1. IBUPROFEN [Suspect]
     Active Substance: IBUPROFEN
     Indication: Migraine
     Dosage: 400 MILLIGRAM, BID ((8 TO 10 DAYS IN MONTH) (800MG DAILY)
     Route: 065
  2. IBUPROFEN [Suspect]
     Active Substance: IBUPROFEN
     Indication: Migraine prophylaxis
     Dosage: 400 MILLIGRAM, BID ((8 TO 10 DAYS IN MONTH)
     Route: 065
  3. IBUPROFEN [Suspect]
     Active Substance: IBUPROFEN
     Indication: Headache
     Dosage: 400 MILLIGRAM, 2X 1, TAKEN 8 TO 10 DAYS A MONTH
     Route: 065
  4. PREGABALIN [Suspect]
     Active Substance: PREGABALIN
     Indication: Migraine
     Dosage: 100 MILLIGRAM DAILY
     Route: 048
  5. PREGABALIN [Suspect]
     Active Substance: PREGABALIN
     Indication: Migraine without aura
     Dosage: 300 MILLIGRAM DAILY
     Route: 048
  6. SUMATRIPTAN [Suspect]
     Active Substance: SUMATRIPTAN
     Indication: Migraine prophylaxis
     Dosage: 50 MILLIGRAM, QD, OVER 22 DAYS IN MONTH
     Route: 048
  7. SUMATRIPTAN [Suspect]
     Active Substance: SUMATRIPTAN
     Indication: Migraine
     Dosage: 100 MILLIGRAM, DAILY
     Route: 048
  8. SUMATRIPTAN [Suspect]
     Active Substance: SUMATRIPTAN
     Dosage: 50 MILLIGRAM PER DAY
     Route: 048
  9. SUMATRIPTAN [Suspect]
     Active Substance: SUMATRIPTAN
     Dosage: 50 MILLIGRAM, QD OVER 22 DAYS IN A MONTH
     Route: 065
  10. TOPAMAX [Suspect]
     Active Substance: TOPIRAMATE
     Indication: Migraine prophylaxis
     Dosage: 75 MILLIGRAM DAILY
     Route: 048
  11. TOPAMAX [Suspect]
     Active Substance: TOPIRAMATE
     Indication: Migraine
     Dosage: 25 MILLIGRAM, TID
     Route: 048
  12. TOPAMAX [Suspect]
     Active Substance: TOPIRAMATE
     Indication: Migraine without aura
     Dosage: 100 MILLIGRAM DAILY
     Route: 048
  13. TOPAMAX [Suspect]
     Active Substance: TOPIRAMATE
     Dosage: 25 MILLIGRAM, UNK
     Route: 048
  14. TOPAMAX [Suspect]
     Active Substance: TOPIRAMATE
     Dosage: 25 MILLIGRAM, PER DAY, AT A TOTAL DAILY DOSE OF 75 MG FOR 2 MONTHS)
     Route: 048
  15. VALPROIC ACID [Suspect]
     Active Substance: VALPROIC ACID
     Indication: Migraine
     Dosage: 100 MILLIGRAM DAILY
     Route: 048
  16. VALPROIC ACID [Suspect]
     Active Substance: VALPROIC ACID
     Dosage: 800 MILLIGRAM PER DAY
     Route: 048
  17. VENLAFAXINE [Suspect]
     Active Substance: VENLAFAXINE HYDROCHLORIDE
     Indication: Migraine
     Dosage: 150 MILLIGRAM DAILY
     Route: 048
  18. VENLAFAXINE [Suspect]
     Active Substance: VENLAFAXINE HYDROCHLORIDE
     Indication: Migraine without aura
     Dosage: 100 MILLIGRAM DAILY
     Route: 048
  19. AJOVY [Suspect]
     Active Substance: FREMANEZUMAB-VFRM
     Indication: Migraine
     Dosage: 100 MILLIGRAM DAILY
     Route: 048
  20. AJOVY [Suspect]
     Active Substance: FREMANEZUMAB-VFRM
     Dosage: 8.035 MILLIGRAM DAILY (8.0357 MG DAILY AND 225 MG PER 28 DAY), SOLUTION FOR INJECTION IN PRE-FILLED
     Route: 058
  21. VALPROATE [Suspect]
     Active Substance: VALPROIC ACID
     Indication: Migraine
     Dosage: 400 MILLIGRAM, BID (EVERY 12 HOUR)
     Route: 065
  22. VALPROATE [Suspect]
     Active Substance: VALPROIC ACID
     Indication: Migraine without aura
  23. CINNARIZINE [Concomitant]
     Active Substance: CINNARIZINE
     Indication: Rash
     Dosage: 75 MILLIGRAM, QD
     Route: 065
  24. CINNARIZINE [Concomitant]
     Active Substance: CINNARIZINE
     Indication: Migraine without aura
     Dosage: 75 MILLIGRAM, QD
     Route: 065
  25. CINNARIZINE [Concomitant]
     Active Substance: CINNARIZINE
     Indication: Rash

REACTIONS (11)
  - Migraine without aura [Recovered/Resolved]
  - Injection site mass [Recovered/Resolved]
  - Drug ineffective [Unknown]
  - Therapeutic product effect incomplete [Unknown]
  - Medication overuse headache [Recovered/Resolved]
  - Fatigue [Recovered/Resolved]
  - Headache [Recovered/Resolved]
  - Fatigue [Recovered/Resolved]
  - Drug intolerance [Unknown]
  - Product use issue [Unknown]
  - Product use in unapproved indication [Unknown]
